FAERS Safety Report 25166342 (Version 1)
Quarter: 2025Q2

REPORT INFORMATION
  Report Type: Other
  Country: CN (occurrence: CN)
  Receive Date: 20250407
  Receipt Date: 20250407
  Transmission Date: 20250717
  Serious: Yes (Other)
  Sender: QILU PHARMACEUTICAL
  Company Number: CN-QILU PHARMACEUTICAL (HAINAN) CO.  LTD.-QLH-000084-2025

PATIENT
  Age: 53 Year
  Sex: Male
  Weight: 60 kg

DRUGS (2)
  1. OXALIPLATIN [Suspect]
     Active Substance: OXALIPLATIN
     Indication: Colon cancer
     Dosage: 200 MG ONCE A DAY
     Route: 041
     Dates: start: 20250314, end: 20250314
  2. CAPECITABINE [Suspect]
     Active Substance: CAPECITABINE
     Indication: Colon cancer
     Dosage: 1.5 G TWICE DAILY
     Route: 048
     Dates: start: 20250314, end: 20250315

REACTIONS (2)
  - Angina pectoris [Recovered/Resolved]
  - Asthenia [Not Recovered/Not Resolved]

NARRATIVE: CASE EVENT DATE: 20250314
